FAERS Safety Report 9989033 (Version 2)
Quarter: 2014Q1

REPORT INFORMATION
  Report Type: Report from Study
  Country: PR (occurrence: PR)
  Receive Date: 20140310
  Receipt Date: 20140310
  Transmission Date: 20141002
  Serious: No
  Sender: FDA-Public Use
  Company Number: PR-ABBVIE-12P-131-0914996-00

PATIENT
  Age: 57 Year
  Sex: Female
  Weight: 81.72 kg

DRUGS (8)
  1. HUMIRA [Suspect]
     Indication: RHEUMATOID ARTHRITIS
     Route: 058
     Dates: start: 2007, end: 201203
  2. HUMIRA [Suspect]
     Route: 058
     Dates: start: 201204
  3. SYNTHROID [Concomitant]
     Indication: THYROID DISORDER
     Route: 048
  4. DEPAKOTE [Concomitant]
     Indication: EPILEPSY
     Route: 048
  5. NEURONTIN [Concomitant]
     Indication: NEUROPATHY PERIPHERAL
     Route: 048
  6. METHOTREXATE [Concomitant]
     Indication: RHEUMATOID ARTHRITIS
     Route: 048
  7. VICODIN [Concomitant]
     Indication: PAIN
     Route: 048
  8. HYZAAR [Concomitant]
     Indication: HYPERTENSION
     Route: 048

REACTIONS (4)
  - Nasopharyngitis [Recovered/Resolved]
  - Keratitis [Unknown]
  - Nasopharyngitis [Unknown]
  - Pharyngitis [Recovered/Resolved]
